FAERS Safety Report 23330933 (Version 1)
Quarter: 2023Q4

REPORT INFORMATION
  Report Type: Other
  Country: US (occurrence: None)
  Receive Date: 20231222
  Receipt Date: 20231222
  Transmission Date: 20240109
  Serious: Yes (Other)
  Sender: FDA-Public Use
  Company Number: US-ROCHE-3478307

PATIENT
  Age: 51 Year
  Sex: Male

DRUGS (1)
  1. ZELBORAF [Suspect]
     Active Substance: VEMURAFENIB
     Indication: Malignant neoplasm of unknown primary site
     Route: 065

REACTIONS (2)
  - Pancreatic carcinoma stage IV [Unknown]
  - Metastatic neoplasm [Unknown]
